FAERS Safety Report 4788717-0 (Version None)
Quarter: 2005Q3

REPORT INFORMATION
  Report Type: 
  Country: None (occurrence: None)
  Receive Date: 20050915
  Receipt Date: 20050721
  Transmission Date: 20060218
  Serious: No
  Sender: FDA-Public Use
  Company Number: BDI-007389

PATIENT
  Age: 57 Year
  Sex: Female

DRUGS (2)
  1. MULTIHANCE [Suspect]
     Indication: NUCLEAR MAGNETIC RESONANCE IMAGING BRAIN
     Dosage: 15 ML ONCE IV
     Route: 042
     Dates: start: 20050721, end: 20050721
  2. MULTIHANCE [Suspect]
     Indication: SENSORY LOSS
     Dosage: 15 ML ONCE IV
     Route: 042
     Dates: start: 20050721, end: 20050721

REACTIONS (1)
  - NAUSEA [None]
